FAERS Safety Report 15460075 (Version 3)
Quarter: 2019Q3

REPORT INFORMATION
  Report Type: Spontaneous
  Country: RS (occurrence: RS)
  Receive Date: 20181003
  Receipt Date: 20190725
  Transmission Date: 20191004
  Serious: Yes (Death, Other)
  Sender: FDA-Public Use
  Company Number: RS-BAYER-2018-182261

PATIENT
  Age: 51 Year
  Sex: Female

DRUGS (2)
  1. NEXAVAR [Suspect]
     Active Substance: SORAFENIB
     Indication: HEPATOCELLULAR CARCINOMA
     Dosage: 400 MG, QD
     Route: 048
     Dates: start: 201705
  2. NEXAVAR [Suspect]
     Active Substance: SORAFENIB
     Indication: HEPATOCELLULAR CARCINOMA
     Dosage: 200 MG, QD
     Dates: start: 201705, end: 201811

REACTIONS (8)
  - Haemorrhoidal haemorrhage [None]
  - Vomiting [None]
  - Skin burning sensation [Recovered/Resolved]
  - Hepatocellular carcinoma [Fatal]
  - Abdominal pain [Recovered/Resolved]
  - Frequent bowel movements [None]
  - Fatigue [None]
  - Metastases to spleen [Not Recovered/Not Resolved]

NARRATIVE: CASE EVENT DATE: 201705
